FAERS Safety Report 26006236 (Version 1)
Quarter: 2025Q4

REPORT INFORMATION
  Report Type: Other
  Country: US (occurrence: US)
  Receive Date: 20251106
  Receipt Date: 20251106
  Transmission Date: 20260118
  Serious: Yes (Hospitalization)
  Sender: Cintas
  Company Number: US-Cintas-2187997

PATIENT

DRUGS (1)
  1. XPECT ANTISEPTIC WIPES [Suspect]
     Active Substance: BENZALKONIUM CHLORIDE

REACTIONS (1)
  - Hypersensitivity [Recovered/Resolved]

NARRATIVE: CASE EVENT DATE: 20250821
